FAERS Safety Report 14389434 (Version 2)
Quarter: 2018Q3

REPORT INFORMATION
  Report Type: Spontaneous
  Country: US (occurrence: US)
  Receive Date: 20180115
  Receipt Date: 20180920
  Transmission Date: 20181010
  Serious: Yes (Other)
  Sender: FDA-Public Use
  Company Number: US-SA-2017SA244248

PATIENT
  Age: 40 Year
  Sex: Female
  Weight: 108.9 kg

DRUGS (6)
  1. BENICAR [Concomitant]
     Active Substance: OLMESARTAN MEDOXOMIL
     Dosage: UNK UNK,UNK
     Route: 065
     Dates: start: 2009
  2. DOCETAXEL. [Suspect]
     Active Substance: DOCETAXEL
     Dosage: 160 MG,Q3W
     Route: 042
     Dates: start: 20150827, end: 20150827
  3. DOCETAXEL. [Suspect]
     Active Substance: DOCETAXEL
     Dosage: 160 MG,Q3W
     Route: 042
     Dates: start: 20151214, end: 20151214
  4. PARAPLATIN [Concomitant]
     Active Substance: CARBOPLATIN
  5. HERCEPTIN [Concomitant]
     Active Substance: TRASTUZUMAB
  6. PERJETA [Concomitant]
     Active Substance: PERTUZUMAB

REACTIONS (4)
  - Alopecia [Recovering/Resolving]
  - Impaired quality of life [Unknown]
  - Anxiety [Unknown]
  - Emotional distress [Unknown]

NARRATIVE: CASE EVENT DATE: 201509
